FAERS Safety Report 10048085 (Version 1)
Quarter: 2014Q1

REPORT INFORMATION
  Report Type: Spontaneous
  Country: US (occurrence: US)
  Receive Date: 20140331
  Receipt Date: 20140331
  Transmission Date: 20141002
  Serious: Yes (Other)
  Sender: FDA-Public Use
  Company Number: US-PFIZER INC-2014085063

PATIENT
  Sex: Female

DRUGS (2)
  1. GLIPIZIDE XL [Suspect]
     Indication: BLOOD GLUCOSE INCREASED
     Dosage: UNK
  2. GLIPIZIDE [Suspect]
     Indication: BLOOD GLUCOSE INCREASED

REACTIONS (1)
  - Drug ineffective [Unknown]
